FAERS Safety Report 6213151-6 (Version None)
Quarter: 2009Q2

REPORT INFORMATION
  Report Type: 
  Country: None (occurrence: None)
  Receive Date: 20090528
  Receipt Date: 20090216
  Transmission Date: 20091009
  Serious: No
  Sender: FDA-Public Use
  Company Number: MC200900057

PATIENT
  Sex: Male

DRUGS (2)
  1. CLEVIPREX [Suspect]
     Indication: HYPERTENSION
     Dosage: 1 MG PER HR, INTRAVENOUS; 0.5 MG PER HR, INTRAVENOUS
     Route: 042
     Dates: start: 20090216, end: 20090216
  2. CLEVIPREX [Suspect]
     Indication: HYPERTENSION
     Dosage: 1 MG PER HR, INTRAVENOUS; 0.5 MG PER HR, INTRAVENOUS
     Route: 042
     Dates: start: 20090216, end: 20090216

REACTIONS (1)
  - HYPOTENSION [None]
